FAERS Safety Report 21056256 (Version 1)
Quarter: 2022Q3

REPORT INFORMATION
  Report Type: Spontaneous
  Country: US (occurrence: US)
  Receive Date: 20220708
  Receipt Date: 20220708
  Transmission Date: 20221027
  Serious: No
  Sender: FDA-Public Use
  Company Number: US-EPICPHARMA-US-2022EPCSPO00968

PATIENT
  Sex: Female

DRUGS (1)
  1. FUROSEMIDE [Suspect]
     Active Substance: FUROSEMIDE
     Indication: Product used for unknown indication
     Route: 065

REACTIONS (5)
  - Joint swelling [Unknown]
  - Peripheral swelling [Unknown]
  - Weight increased [Unknown]
  - Overdose [Unknown]
  - Product dose omission in error [Unknown]
